FAERS Safety Report 19351171 (Version 1)
Quarter: 2021Q2

REPORT INFORMATION
  Report Type: Report from Study
  Country: CA (occurrence: CA)
  Receive Date: 20210531
  Receipt Date: 20210531
  Transmission Date: 20210717
  Serious: Yes (Other)
  Sender: FDA-Public Use
  Company Number: CA-ORION CORPORATION ORION PHARMA-21_00014570

PATIENT
  Age: 78 Year
  Sex: Female

DRUGS (6)
  1. SULFASALAZINE. [Concomitant]
     Active Substance: SULFASALAZINE
     Route: 065
  2. PLAQUENIL [Concomitant]
     Active Substance: HYDROXYCHLOROQUINE SULFATE
     Route: 065
  3. ARAVA [Concomitant]
     Active Substance: LEFLUNOMIDE
     Route: 065
  4. CIMZIA [Concomitant]
     Active Substance: CERTOLIZUMAB PEGOL
     Route: 065
  5. METHOTREXATE (TRADE NAME UNKNOWN) [Suspect]
     Active Substance: METHOTREXATE
     Indication: PRODUCT USED FOR UNKNOWN INDICATION
     Route: 065
  6. NAPROXEN. [Concomitant]
     Active Substance: NAPROXEN
     Route: 065

REACTIONS (7)
  - Pain [Unknown]
  - Nervous system disorder [Unknown]
  - Psoriasis [Unknown]
  - Pain in extremity [Unknown]
  - Musculoskeletal stiffness [Unknown]
  - Psoriatic arthropathy [Unknown]
  - Myalgia [Unknown]
